FAERS Safety Report 16751245 (Version 2)
Quarter: 2019Q4

REPORT INFORMATION
  Report Type: Spontaneous
  Country: US (occurrence: US)
  Receive Date: 20190828
  Receipt Date: 20191021
  Transmission Date: 20200122
  Serious: Yes (Other)
  Sender: FDA-Public Use
  Company Number: US-BAYER-2019-158175

PATIENT
  Age: 31 Year
  Sex: Female
  Weight: 81.63 kg

DRUGS (4)
  1. MIRENA [Suspect]
     Active Substance: LEVONORGESTREL
     Indication: CONTRACEPTION
     Dosage: 20 MCG/24HR, CONT
     Route: 015
     Dates: start: 20190828, end: 20190828
  2. MIRENA [Suspect]
     Active Substance: LEVONORGESTREL
     Indication: CONTRACEPTION
  3. ANALGESIA [Concomitant]
     Active Substance: UNSPECIFIED INGREDIENT
     Dosage: UNK
     Dates: start: 20190828, end: 20190828
  4. MIRENA [Suspect]
     Active Substance: LEVONORGESTREL
     Indication: CONTRACEPTION
     Dosage: 20 MCG/24HR, CONT
     Route: 015
     Dates: start: 20190806, end: 20190828

REACTIONS (4)
  - Procedural pain [None]
  - Uterine perforation [Recovered/Resolved]
  - Uterine perforation [Recovered/Resolved]
  - Abdominal pain [None]

NARRATIVE: CASE EVENT DATE: 201908
